FAERS Safety Report 13507654 (Version 1)
Quarter: 2017Q2

REPORT INFORMATION
  Report Type: Spontaneous
  Country: US (occurrence: US)
  Receive Date: 20170503
  Receipt Date: 20170503
  Transmission Date: 20170830
  Serious: Yes (Disabling)
  Sender: FDA-Public Use
  Company Number: None

PATIENT
  Age: 48 Year
  Sex: Female
  Weight: 63 kg

DRUGS (8)
  1. BOTOX [Suspect]
     Active Substance: ONABOTULINUMTOXINA
     Indication: SKIN COSMETIC PROCEDURE
     Dosage: ?          QUANTITY:5 INJECTION(S);?
     Route: 030
     Dates: start: 20160305, end: 20170202
  2. MELATONIN [Concomitant]
     Active Substance: MELATONIN
  3. ZZZQUIL NIGHTTIME SLEEP-AID [Concomitant]
     Active Substance: DIPHENHYDRAMINE HYDROCHLORIDE
  4. MAGNESIUM SUPPLEMENTS [Concomitant]
  5. IBUPROFEN. [Concomitant]
     Active Substance: IBUPROFEN
  6. ARMOUR THYROID [Concomitant]
     Active Substance: THYROID, PORCINE
  7. OMEGA 3 OILS [Concomitant]
  8. XANAX [Concomitant]
     Active Substance: ALPRAZOLAM

REACTIONS (3)
  - Anxiety [None]
  - Insomnia [None]
  - Palpitations [None]

NARRATIVE: CASE EVENT DATE: 20160305
